FAERS Safety Report 10456253 (Version 1)
Quarter: 2014Q3

REPORT INFORMATION
  Report Type: Spontaneous
  Country: US (occurrence: None)
  Receive Date: 20140915
  Receipt Date: 20140915
  Transmission Date: 20150326
  Serious: Yes (Hospitalization)
  Sender: FDA-Public Use
  Company Number: None

PATIENT
  Sex: Male
  Weight: 101.83 kg

DRUGS (22)
  1. TRAMADOL [Concomitant]
     Active Substance: TRAMADOL
  2. ZOVIRAX [Concomitant]
     Active Substance: ACYCLOVIR
  3. VITAMIN B COMPLEX [Concomitant]
     Active Substance: CYANOCOBALAMIN\DEXPANTHENOL\NIACINAMIDE\PYRIDOXINE HYDROCHLORIDE\RIBOFLAVIN 5^-PHOSPHATE SODIUM\THIAMINE HYDROCHLORIDE\VITAMIN B COMPLEX
  4. SYNTHROID [Concomitant]
     Active Substance: LEVOTHYROXINE SODIUM
  5. MYLANTA [Concomitant]
     Active Substance: ALUMINUM HYDROXIDE\MAGNESIUM HYDROXIDE\SIMETHICONE
  6. MAALOX ANTACID [Concomitant]
     Active Substance: ALUMINUM HYDROXIDE\DIMETHICONE\MAGNESIUM HYDROXIDE
  7. ALDACTONE [Concomitant]
     Active Substance: SPIRONOLACTONE
  8. SOFOSBUVIR [Suspect]
     Active Substance: SOFOSBUVIR
     Indication: HEPATITIS C
     Route: 048
     Dates: start: 20140212
  9. LASIX [Concomitant]
     Active Substance: FUROSEMIDE
  10. LACTIBACILLUS [Concomitant]
  11. POTASSIUM CHLORIDE. [Concomitant]
     Active Substance: POTASSIUM CHLORIDE
  12. TRAZODONE [Concomitant]
     Active Substance: TRAZODONE HYDROCHLORIDE
  13. CALCIUM CARB/VIT [Concomitant]
  14. D3/MAG11/ZINC [Concomitant]
  15. OLYSIO [Suspect]
     Active Substance: SIMEPREVIR
     Indication: HEPATITIS C
     Route: 048
     Dates: start: 20140402
  16. TUMS [Concomitant]
     Active Substance: CALCIUM CARBONATE
  17. RESTORIL [Concomitant]
     Active Substance: TEMAZEPAM
  18. ACIDOPHILUS [Concomitant]
     Active Substance: LACTOBACILLUS ACIDOPHILUS
  19. MAGNESIUM PO [Concomitant]
  20. ALBUMIN HUMAN [Concomitant]
     Active Substance: ALBUMIN (HUMAN)
  21. VITAMIN D [Concomitant]
     Active Substance: CHOLECALCIFEROL
  22. VALTREX [Concomitant]
     Active Substance: VALACYCLOVIR HYDROCHLORIDE

REACTIONS (2)
  - Escherichia bacteraemia [None]
  - Peritonitis bacterial [None]

NARRATIVE: CASE EVENT DATE: 20140505
